FAERS Safety Report 12772679 (Version 2)
Quarter: 2016Q4

REPORT INFORMATION
  Report Type: Report from Study
  Country: NL (occurrence: NL)
  Receive Date: 20160922
  Receipt Date: 20161024
  Transmission Date: 20170207
  Serious: Yes (Hospitalization)
  Sender: FDA-Public Use
  Company Number: NL-FERRINGPH-2016FE05217

PATIENT

DRUGS (2)
  1. DEGARELIX [Suspect]
     Active Substance: DEGARELIX
     Indication: PROSTATE CANCER
     Dosage: 80 MG, MONTHLY
     Route: 058
     Dates: start: 201508
  2. DEGARELIX [Suspect]
     Active Substance: DEGARELIX
     Dosage: 240 (2X120) MG, ONCE/SINGLE
     Route: 058
     Dates: start: 20150709

REACTIONS (3)
  - Weight decreased [Unknown]
  - Dysphagia [Recovered/Resolved]
  - Angiopathy [Unknown]

NARRATIVE: CASE EVENT DATE: 20160912
